FAERS Safety Report 10578812 (Version 1)
Quarter: 2014Q4

REPORT INFORMATION
  Report Type: Spontaneous
  Country: NL (occurrence: NL)
  Receive Date: 20141112
  Receipt Date: 20141112
  Transmission Date: 20150529
  Serious: Yes (Hospitalization, Other)
  Sender: FDA-Public Use
  Company Number: PHHY2011NL122961

PATIENT
  Age: 61 Year
  Sex: Male

DRUGS (3)
  1. SANDOSTATIN [Suspect]
     Active Substance: OCTREOTIDE ACETATE
     Indication: INSULINOMA
  2. SANDOSTATIN [Suspect]
     Active Substance: OCTREOTIDE ACETATE
     Indication: NEUROENDOCRINE TUMOUR
     Dosage: 0.05 MG, BID
     Route: 058
     Dates: start: 20110901
  3. AFINITOR [Suspect]
     Active Substance: EVEROLIMUS
     Indication: NEUROENDOCRINE TUMOUR
     Dosage: 10 MG, DAILY
     Route: 065
     Dates: start: 20140920

REACTIONS (8)
  - Renal failure [Recovered/Resolved]
  - Hypoglycaemia [Recovered/Resolved]
  - Hypoglycaemic seizure [Recovered/Resolved]
  - Toxicity to various agents [Recovered/Resolved]
  - Delirium [Recovered/Resolved]
  - Ileus [Recovered/Resolved]
  - Chondrocalcinosis pyrophosphate [Recovering/Resolving]
  - Nausea [Recovering/Resolving]
